FAERS Safety Report 8772978 (Version 1)
Quarter: 2012Q4

REPORT INFORMATION
  Report Type: 
  Country: JP (occurrence: JP)
  Receive Date: 20120907
  Receipt Date: 20120907
  Transmission Date: 20130627
  Serious: Yes (Other)
  Sender: FDA-Public Use
  Company Number: PHHY2012JP077321

PATIENT

DRUGS (4)
  1. NEORAL [Suspect]
     Dosage: 4 mg/kg/day
  2. NEORAL [Suspect]
     Dosage: 4-8mg/kg/day
  3. IMMUNOGLOBULINS [Concomitant]
     Dosage: 2gm/kg for 24hrs
     Route: 042
  4. ASPIRIN [Concomitant]
     Dosage: 30-50mg/kg/day
     Route: 048

REACTIONS (2)
  - Coronary artery disease [Unknown]
  - Drug ineffective [Unknown]
